FAERS Safety Report 24361932 (Version 1)
Quarter: 2024Q3

REPORT INFORMATION
  Report Type: Spontaneous
  Country: SD (occurrence: SD)
  Receive Date: 20240925
  Receipt Date: 20240925
  Transmission Date: 20241017
  Serious: Yes (Other)
  Sender: RANBAXY
  Company Number: SD-SUN PHARMACEUTICAL INDUSTRIES LTD-2024RR-469559

PATIENT
  Age: 8 Year
  Sex: Male

DRUGS (3)
  1. AMPHOTERICIN B [Suspect]
     Active Substance: AMPHOTERICIN B
     Indication: Mycetoma mycotic
     Dosage: 50 MILLIGRAM, DAILY
     Route: 040
  2. ITRACONAZOLE [Suspect]
     Active Substance: ITRACONAZOLE
     Indication: Mycetoma mycotic
     Dosage: 100 MILLIGRAM, BID
     Route: 048
  3. FOLIC ACID [Suspect]
     Active Substance: FOLIC ACID
     Indication: Mycetoma mycotic
     Dosage: 5 MILLIGRAM, DAILY
     Route: 048

REACTIONS (2)
  - Adverse event [Unknown]
  - Disease progression [Unknown]
